FAERS Safety Report 4595589-6 (Version None)
Quarter: 2005Q1

REPORT INFORMATION
  Report Type: 
  Country: None (occurrence: None)
  Receive Date: 20050224
  Receipt Date: 20050218
  Transmission Date: 20050727
  Serious: Yes (Hospitalization, Other)
  Sender: FDA-Public Use
  Company Number: KII-2005-0015250

PATIENT
  Age: 38 Year
  Sex: Female

DRUGS (7)
  1. MORPHINE SULFATE [Suspect]
     Indication: PAIN
  2. TRAMADOL HCL [Suspect]
  3. EPHEDRINE/PSEUDOEPHEDRINE () [Suspect]
  4. DIPHENHYDRAMINE (DIPHENHYDRAMINE) [Suspect]
  5. RANITIDINE [Suspect]
  6. DEXTROMETHORPAM (DEXTROMETHORPAM) [Concomitant]
  7. PHENOTHIAZINE (PHENOTHIAZINE) [Suspect]

REACTIONS (5)
  - COMA [None]
  - DRUG SCREEN POSITIVE [None]
  - MIOSIS [None]
  - PNEUMONIA [None]
  - PUPILLARY REFLEX IMPAIRED [None]
